FAERS Safety Report 17294974 (Version 1)
Quarter: 2020Q1

REPORT INFORMATION
  Report Type: Spontaneous
  Country: US (occurrence: US)
  Receive Date: 20200121
  Receipt Date: 20200121
  Transmission Date: 20200409
  Serious: Yes (Other)
  Sender: FDA-Public Use
  Company Number: US-NOVOPROD-707092

PATIENT
  Sex: Female

DRUGS (1)
  1. TRESIBA [Suspect]
     Active Substance: INSULIN DEGLUDEC
     Indication: TYPE 2 DIABETES MELLITUS
     Dosage: 70-80 UNITS
     Route: 058

REACTIONS (4)
  - Urinary tract infection [Recovered/Resolved]
  - Ill-defined disorder [Unknown]
  - Visual impairment [Unknown]
  - Injury associated with device [Unknown]

NARRATIVE: CASE EVENT DATE: 201912
